FAERS Safety Report 5930613-7 (Version None)
Quarter: 2008Q4

REPORT INFORMATION
  Report Type: 
  Country: None (occurrence: None)
  Receive Date: 20081027
  Receipt Date: 20081010
  Transmission Date: 20090506
  Serious: Yes (Other)
  Sender: FDA-Public Use
  Company Number: US-JNJFOC-20081003258

PATIENT
  Sex: Female
  Weight: 62.6 kg

DRUGS (4)
  1. DURAGESIC-100 [Suspect]
     Indication: FIBROMYALGIA
     Route: 062
  2. DURAGESIC-100 [Suspect]
     Indication: SYSTEMIC LUPUS ERYTHEMATOSUS
     Route: 062
  3. DURAGESIC-100 [Suspect]
     Indication: PAIN
     Route: 062
  4. KLONOPIN [Concomitant]
     Indication: CONVULSION
     Route: 048

REACTIONS (4)
  - AMNESIA [None]
  - CONVULSION [None]
  - PAIN [None]
  - TREATMENT NONCOMPLIANCE [None]
